FAERS Safety Report 23040081 (Version 1)
Quarter: 2023Q4

REPORT INFORMATION
  Report Type: Spontaneous
  Country: US (occurrence: US)
  Receive Date: 20231006
  Receipt Date: 20231006
  Transmission Date: 20240109
  Serious: No
  Sender: FDA-Public Use
  Company Number: US-BRISTOL-MYERS SQUIBB COMPANY-2023-141674

PATIENT
  Age: 67 Year
  Sex: Male

DRUGS (1)
  1. IDHIFA [Suspect]
     Active Substance: ENASIDENIB MESYLATE
     Indication: Product used for unknown indication
     Dosage: DOSE : UNKNOWN;     FREQ : TAKE 1 TABLET BY MOUTH ONCE DAILY
     Route: 048

REACTIONS (2)
  - Renal disorder [Unknown]
  - Cough [Unknown]
